FAERS Safety Report 23958559 (Version 1)
Quarter: 2024Q2

REPORT INFORMATION
  Report Type: Spontaneous
  Country: CN (occurrence: CN)
  Receive Date: 20240610
  Receipt Date: 20240610
  Transmission Date: 20240715
  Serious: Yes (Hospitalization, Other)
  Sender: FDA-Public Use
  Company Number: None

PATIENT
  Age: 28 Year
  Sex: Male

DRUGS (2)
  1. OLANZAPINE [Suspect]
     Active Substance: OLANZAPINE
     Indication: Mental disorder
     Dosage: EXCEEDING SIX MONTHS
     Dates: end: 2022
  2. LITHIUM CARBONATE [Concomitant]
     Active Substance: LITHIUM CARBONATE
     Indication: Mental disorder
     Dosage: 300MG OF LITHIUM CARBONATE THREE TIMES A DAY

REACTIONS (7)
  - Brain oedema [Recovered/Resolved]
  - Neurotoxicity [Recovered/Resolved]
  - Overdose [Recovered/Resolved]
  - Intracranial pressure increased [Recovered/Resolved]
  - Generalised tonic-clonic seizure [Recovered/Resolved]
  - Coma [Recovered/Resolved]
  - Toxicity to various agents [Recovered/Resolved]

NARRATIVE: CASE EVENT DATE: 20220414
